FAERS Safety Report 12510114 (Version 1)
Quarter: 2016Q2

REPORT INFORMATION
  Report Type: Spontaneous
  Country: US (occurrence: US)
  Receive Date: 20160629
  Receipt Date: 20160629
  Transmission Date: 20160815
  Serious: No
  Sender: FDA-Public Use
  Company Number: US-RB-077719-15

PATIENT
  Sex: Male

DRUGS (1)
  1. MUCINEX DM [Suspect]
     Active Substance: DEXTROMETHORPHAN HYDROBROMIDE\GUAIFENESIN
     Indication: PRODUCT USED FOR UNKNOWN INDICATION
     Dosage: 600MG. PATIENT TOOK 5 TABLETS IN 24 HOURS,FREQUENCY UNK
     Route: 065

REACTIONS (4)
  - Head discomfort [Unknown]
  - Feeling abnormal [Unknown]
  - Overdose [Unknown]
  - Chest pain [Unknown]
